FAERS Safety Report 23901891 (Version 1)
Quarter: 2024Q2

REPORT INFORMATION
  Report Type: Spontaneous
  Country: US (occurrence: None)
  Receive Date: 20240526
  Receipt Date: 20240526
  Transmission Date: 20240716
  Serious: No
  Sender: FDA-Public Use
  Company Number: US-ROCHE-3520562

PATIENT
  Age: 52 Year
  Sex: Female

DRUGS (1)
  1. OCREVUS [Suspect]
     Active Substance: OCRELIZUMAB
     Indication: Multiple sclerosis
     Dosage: EVERY 6 MONTHS THEREAFTER
     Route: 065
     Dates: start: 202111

REACTIONS (5)
  - Eosinophilic colitis [Recovered/Resolved]
  - Gastrointestinal pain [Recovered/Resolved]
  - Weight decreased [Recovered/Resolved]
  - Mucosal inflammation [Recovered/Resolved]
  - Gastrointestinal oedema [Recovered/Resolved]

NARRATIVE: CASE EVENT DATE: 20230710
